FAERS Safety Report 6188641-5 (Version None)
Quarter: 2009Q2

REPORT INFORMATION
  Report Type: 
  Country: None (occurrence: None)
  Receive Date: 20090511
  Receipt Date: 20090511
  Transmission Date: 20091009
  Serious: Yes (Life-Threatening, Hospitalization, Disabling)
  Sender: FDA-Public Use
  Company Number: None

PATIENT
  Age: 18 Year
  Sex: Male
  Weight: 79.3795 kg

DRUGS (1)
  1. ALLEGRA D 24 HOUR [Suspect]
     Indication: SEASONAL ALLERGY
     Dosage: ONE TABLET 2 TIMES DAY PO
     Route: 048
     Dates: start: 20090201, end: 20090312

REACTIONS (5)
  - EXTRADURAL HAEMATOMA [None]
  - HYPOAESTHESIA [None]
  - MOVEMENT DISORDER [None]
  - MUSCULOSKELETAL PAIN [None]
  - NECK PAIN [None]
